FAERS Safety Report 5197183-5 (Version None)
Quarter: 2006Q4

REPORT INFORMATION
  Report Type: 
  Country: None (occurrence: None)
  Receive Date: 20061227
  Receipt Date: 20061214
  Transmission Date: 20070319
  Serious: Yes (Other)
  Sender: FDA-Public Use
  Company Number: 2006150313

PATIENT
  Age: 43 Year
  Sex: Male

DRUGS (5)
  1. SULPERAZON (SULBACTAM, CEFOPERAZONE) [Suspect]
     Dosage: 1 GRAM, INTRAVENOUS
     Route: 042
     Dates: start: 20060902, end: 20060907
  2. MORPHINE [Concomitant]
  3. ATRACURIUM BESYLATE [Concomitant]
  4. PROPOFOL [Concomitant]
  5. DRUG, UNSPECIFIED (DRUG, UNSPECIFIED) [Concomitant]

REACTIONS (1)
  - HYPOTENSION [None]
